FAERS Safety Report 10014816 (Version 2)
Quarter: 2014Q1

REPORT INFORMATION
  Report Type: Spontaneous
  Country: DE (occurrence: DE)
  Receive Date: 20140317
  Receipt Date: 20140317
  Transmission Date: 20141002
  Serious: Yes (Other)
  Sender: FDA-Public Use
  Company Number: DE-B.I. PHARMACEUTICALS,INC./RIDGEFIELD-2014-BI-06072DE

PATIENT
  Age: 81 Year
  Sex: Male
  Weight: 100 kg

DRUGS (1)
  1. SIFROL [Suspect]
     Indication: RESTLESS LEGS SYNDROME
     Dosage: 2.1 MG
     Route: 065
     Dates: start: 2009, end: 2014

REACTIONS (4)
  - Hospitalisation [Recovered/Resolved]
  - Lymphoedema [Not Recovered/Not Resolved]
  - Fatigue [Recovered/Resolved]
  - Overdose [Not Recovered/Not Resolved]
